FAERS Safety Report 4712750-8 (Version None)
Quarter: 2005Q3

REPORT INFORMATION
  Report Type: 
  Country: None (occurrence: None)
  Receive Date: 20050701
  Receipt Date: 20050204
  Transmission Date: 20060218
  Serious: Yes (Hospitalization, Other)
  Sender: FDA-Public Use
  Company Number: 2005026268

PATIENT
  Age: 15 Year
  Sex: Female
  Weight: 58.9676 kg

DRUGS (2)
  1. ZOLOFT [Suspect]
     Indication: DEPRESSION
     Dosage: UNK (1 IN 1 D), ORAL
     Route: 048
     Dates: start: 20040801, end: 20040801
  2. ACETAMINOPHEN [Suspect]
     Indication: ILL-DEFINED DISORDER
     Dosage: UNK, ORAL
     Route: 048

REACTIONS (3)
  - AGGRESSION [None]
  - INTENTIONAL MISUSE [None]
  - SUICIDE ATTEMPT [None]
